FAERS Safety Report 14592916 (Version 3)
Quarter: 2018Q3

REPORT INFORMATION
  Report Type: Spontaneous
  Country: US (occurrence: US)
  Receive Date: 20180302
  Receipt Date: 20180831
  Transmission Date: 20181010
  Serious: Yes (Other)
  Sender: FDA-Public Use
  Company Number: US-009507513-1803USA000879

PATIENT
  Age: 26 Year
  Sex: Female
  Weight: 68.48 kg

DRUGS (1)
  1. NEXPLANON [Suspect]
     Active Substance: ETONOGESTREL
     Indication: CONTRACEPTION
     Dosage: 68 MG, ONCE
     Route: 059
     Dates: start: 20150130, end: 20180403

REACTIONS (12)
  - Complication associated with device [Recovered/Resolved]
  - Bronchial hyperreactivity [Unknown]
  - Pain [Unknown]
  - Incorrect drug administration duration [Recovered/Resolved]
  - Device dislocation [Recovered/Resolved]
  - Full blood count abnormal [Unknown]
  - Surgery [Recovered/Resolved]
  - Asthma [Unknown]
  - General anaesthesia [Unknown]
  - No adverse event [Unknown]
  - Menstruation irregular [Unknown]
  - Laboratory test abnormal [Unknown]

NARRATIVE: CASE EVENT DATE: 20170504
